FAERS Safety Report 15190173 (Version 2)
Quarter: 2018Q3

REPORT INFORMATION
  Report Type: Spontaneous
  Country: BR (occurrence: BR)
  Receive Date: 20180724
  Receipt Date: 20180813
  Transmission Date: 20181010
  Serious: No
  Sender: FDA-Public Use
  Company Number: BR-PFIZER INC-2018288961

PATIENT
  Sex: Male

DRUGS (1)
  1. ARACYTIN CS [Suspect]
     Active Substance: CYTARABINE
     Indication: LEUKAEMIA
     Dosage: 500 MG, UNK
     Dates: start: 201804

REACTIONS (1)
  - No adverse event [Unknown]

NARRATIVE: CASE EVENT DATE: 2018
